FAERS Safety Report 8076001-1 (Version None)
Quarter: 2012Q1

REPORT INFORMATION
  Report Type: 
  Country: None (occurrence: None)
  Receive Date: 20120127
  Receipt Date: 20110304
  Transmission Date: 20120608
  Serious: No
  Sender: FDA-Public Use
  Company Number: US-GLAXOSMITHKLINE-A0916780A

PATIENT
  Age: 54 Year
  Sex: Female

DRUGS (2)
  1. WELLBUTRIN [Suspect]
     Indication: MENOPAUSE
     Dosage: 100MG TWICE PER DAY
     Dates: start: 20100101, end: 20100101
  2. PREMPRO [Concomitant]

REACTIONS (1)
  - HEADACHE [None]
